FAERS Safety Report 22154014 (Version 1)
Quarter: 2023Q1

REPORT INFORMATION
  Report Type: Spontaneous
  Country: US (occurrence: US)
  Receive Date: 20230330
  Receipt Date: 20230330
  Transmission Date: 20230417
  Serious: Yes (Other)
  Sender: FDA-Public Use
  Company Number: US-TEVA-2023-US-2869998

PATIENT
  Sex: Female

DRUGS (1)
  1. TESTOSTERONE CYPIONATE [Suspect]
     Active Substance: TESTOSTERONE CYPIONATE
     Indication: Transgender hormonal therapy
     Route: 065

REACTIONS (5)
  - Idiopathic intracranial hypertension [Unknown]
  - Blindness [Recovered/Resolved]
  - Papilloedema [Unknown]
  - Intracranial pressure increased [Unknown]
  - Vision blurred [Unknown]
